FAERS Safety Report 9101057 (Version 2)
Quarter: 2013Q2

REPORT INFORMATION
  Report Type: Spontaneous
  Country: AU (occurrence: AU)
  Receive Date: 20130217
  Receipt Date: 20130528
  Transmission Date: 20140414
  Serious: Yes (Other)
  Sender: FDA-Public Use
  Company Number: AU-BRISTOL-MYERS SQUIBB COMPANY-17361452

PATIENT
  Sex: Female

DRUGS (3)
  1. ABILIFY TABS [Suspect]
     Indication: BIPOLAR II DISORDER
  2. SODIUM VALPROATE [Suspect]
     Indication: BIPOLAR II DISORDER
  3. ZYPREXA [Suspect]

REACTIONS (9)
  - Paralysis [Unknown]
  - Vision blurred [Unknown]
  - Alopecia [Unknown]
  - Heart rate decreased [Unknown]
  - Palpitations [Unknown]
  - Nausea [Unknown]
  - Peripheral coldness [Unknown]
  - Tinnitus [Unknown]
  - Tooth loss [Unknown]
